FAERS Safety Report 6047352-7 (Version None)
Quarter: 2009Q1

REPORT INFORMATION
  Report Type: 
  Country: None (occurrence: None)
  Receive Date: 20090122
  Receipt Date: 20090114
  Transmission Date: 20090719
  Serious: Yes (Other)
  Sender: FDA-Public Use
  Company Number: US-GENENTECH-272443

PATIENT

DRUGS (2)
  1. AVASTIN [Suspect]
     Indication: COLORECTAL CANCER METASTATIC
  2. CHEMOTHERAPY (UNK INGREDIENTS) [Concomitant]
     Indication: COLORECTAL CANCER METASTATIC

REACTIONS (1)
  - CLOSTRIDIUM DIFFICILE COLITIS [None]
